FAERS Safety Report 6209884-8 (Version None)
Quarter: 2009Q2

REPORT INFORMATION
  Report Type: 
  Country: None (occurrence: None)
  Receive Date: 20090527
  Receipt Date: 20090521
  Transmission Date: 20091009
  Serious: Yes (Disabling)
  Sender: FDA-Public Use
  Company Number: OSCN-NO-0903L-0176

PATIENT
  Age: 65 Year
  Sex: Female

DRUGS (9)
  1. OMNISCAN [Suspect]
     Indication: HAEMORRHAGE
     Dosage: SINGLE DOSE, I.V.
     Route: 042
     Dates: start: 20030307, end: 20030307
  2. OMNISCAN [Suspect]
     Indication: THROMBOSIS
     Dosage: SINGLE DOSE, I.V.
     Route: 042
     Dates: start: 20030307, end: 20030307
  3. OMNISCAN [Suspect]
     Indication: HAEMORRHAGE
     Dosage: SINGLE DOSE, I.V.
     Route: 042
     Dates: start: 20090320, end: 20090320
  4. OMNISCAN [Suspect]
     Indication: THROMBOSIS
     Dosage: SINGLE DOSE, I.V.
     Route: 042
     Dates: start: 20090320, end: 20090320
  5. ANTIBIOTICS [Concomitant]
  6. HEPARIN [Concomitant]
  7. CORTICOSTEROIDS [Concomitant]
  8. AMIODARONE HCL [Concomitant]
  9. DIGOXIN [Concomitant]

REACTIONS (18)
  - ATRIAL FIBRILLATION [None]
  - BLOOD CREATININE INCREASED [None]
  - CONDITION AGGRAVATED [None]
  - DIVERTICULITIS [None]
  - EXTREMITY CONTRACTURE [None]
  - LARGE INTESTINE PERFORATION [None]
  - LEFT VENTRICULAR HYPERTROPHY [None]
  - MYOPATHY [None]
  - PAIN IN EXTREMITY [None]
  - PERICARDIAL EFFUSION [None]
  - PULMONARY HAEMORRHAGE [None]
  - RASH PAPULAR [None]
  - RENAL DISORDER [None]
  - SALIVARY GLAND DISORDER [None]
  - SEPSIS [None]
  - SKIN HYPERPIGMENTATION [None]
  - THROMBOPHLEBITIS SUPERFICIAL [None]
  - VASCULITIS [None]
